FAERS Safety Report 6036530-9 (Version None)
Quarter: 2009Q1

REPORT INFORMATION
  Report Type: 
  Country: None (occurrence: None)
  Receive Date: 20090114
  Receipt Date: 20090105
  Transmission Date: 20090719
  Serious: Yes (Death, Other)
  Sender: FDA-Public Use
  Company Number: US-JNJFOC-20090100740

PATIENT
  Sex: Male
  Weight: 68.04 kg

DRUGS (8)
  1. DURAGESIC-100 [Suspect]
     Indication: BACK PAIN
     Route: 062
  2. ISOSORBIDE DINITRATE [Concomitant]
  3. PREDNISONE TAB [Concomitant]
  4. DILTIAZEM [Concomitant]
  5. FAMOTIDINE [Concomitant]
  6. LASIX [Concomitant]
  7. PANCREASE [Concomitant]
  8. ALPHAGAN [Concomitant]

REACTIONS (7)
  - CARDIAC FAILURE CONGESTIVE [None]
  - CARDIOMYOPATHY [None]
  - CONFUSIONAL STATE [None]
  - CONSTIPATION [None]
  - HALLUCINATION [None]
  - RENAL FAILURE CHRONIC [None]
  - VENTRICULAR ARRHYTHMIA [None]
